FAERS Safety Report 20414886 (Version 1)
Quarter: 2022Q1

REPORT INFORMATION
  Report Type: Report from Study
  Country: US (occurrence: None)
  Receive Date: 20220202
  Receipt Date: 20220202
  Transmission Date: 20220423
  Serious: Yes (Death, Other)
  Sender: FDA-Public Use
  Company Number: US-ADIENNEP-2021AD000705

PATIENT
  Sex: Male

DRUGS (8)
  1. THIOTEPA [Suspect]
     Active Substance: THIOTEPA
     Indication: Chemotherapy
     Dosage: 10 MG/KG/DAY 3 CYCLES EVERY 28 DAYS (DAYS 1-2)
  2. CARBOPLATIN [Suspect]
     Active Substance: CARBOPLATIN
     Indication: Chemotherapy
     Dosage: 17 MG/KG/DAY 3 CYCLES EVERY 28 DAYS (DAYS 1-2)
  3. VORINOSTAT [Suspect]
     Active Substance: VORINOSTAT
     Indication: Chemotherapy
     Dosage: 230 MG/M2 3 CYCLES EVERY 21 DAYS (DAYS 1-4)
     Route: 048
  4. ISOTRETINOIN [Suspect]
     Active Substance: ISOTRETINOIN
     Indication: Chemotherapy
     Dosage: 80 MG/M2 3 CYCLES EVERY 21 DAYS (DAYS 1-4)
     Route: 048
  5. CYCLOPHOSPHAMIDE [Suspect]
     Active Substance: CYCLOPHOSPHAMIDE
     Indication: Chemotherapy
     Dosage: 60 MG/M2 3 CYCLES EVERY 21 DAYS (DAYS 5-6)
  6. ETOPOSIDE [Suspect]
     Active Substance: ETOPOSIDE
     Indication: Chemotherapy
     Dosage: 2.5 MG/KG 3 CYCLES EVERY 21 DAYS (DAYS 4-6)
  7. VINCRISTINE [Suspect]
     Active Substance: VINCRISTINE
     Indication: Chemotherapy
     Dosage: 0.05 MGK/KG 3 CYCLES EVERY 21 DAYS (DAYS 4, 11, 18) ()
  8. CISPLATIN [Suspect]
     Active Substance: CISPLATIN
     Indication: Chemotherapy
     Dosage: 3.5 MG/KG 3 CYCLES EVERY 21 DAYS (DAY 4)

REACTIONS (1)
  - Acute respiratory distress syndrome [Fatal]
